FAERS Safety Report 7759867-1 (Version None)
Quarter: 2011Q3

REPORT INFORMATION
  Report Type: 
  Country: None (occurrence: None)
  Receive Date: 20110919
  Receipt Date: 20110909
  Transmission Date: 20111222
  Serious: Yes (Other)
  Sender: FDA-Public Use
  Company Number: GB-JNJFOC-20110611274

PATIENT
  Sex: Male

DRUGS (6)
  1. AZATHIOPRINE [Concomitant]
     Route: 048
  2. REMICADE [Suspect]
     Dosage: WEEK 2
     Route: 042
     Dates: start: 20110209
  3. REMICADE [Suspect]
     Dosage: WEEK 6
     Route: 042
     Dates: start: 20110309
  4. PREDNISONE [Concomitant]
  5. ASACOL [Concomitant]
  6. REMICADE [Suspect]
     Indication: CROHN'S DISEASE
     Dosage: WEEK 0
     Route: 042
     Dates: start: 20110119

REACTIONS (3)
  - PYREXIA [None]
  - FLUSHING [None]
  - LICHENOID KERATOSIS [None]
